FAERS Safety Report 16224301 (Version 1)
Quarter: 2019Q2

REPORT INFORMATION
  Report Type: Spontaneous
  Country: PL (occurrence: PL)
  Receive Date: 20190422
  Receipt Date: 20190422
  Transmission Date: 20190711
  Serious: Yes (Hospitalization)
  Sender: FDA-Public Use
  Company Number: PL-GLAXOSMITHKLINE-PL2019071424

PATIENT
  Age: 7 Year
  Sex: Female
  Weight: 22 kg

DRUGS (1)
  1. ZINNAT [Suspect]
     Active Substance: CEFUROXIME
     Indication: BRONCHITIS
     Dosage: 125 MG, BID
     Route: 048
     Dates: start: 20161017, end: 20161017

REACTIONS (3)
  - Malaise [Recovered/Resolved]
  - Urticaria [Recovered/Resolved]
  - Vomiting [Recovered/Resolved]

NARRATIVE: CASE EVENT DATE: 20161017
